FAERS Safety Report 5136584-8 (Version None)
Quarter: 2006Q4

REPORT INFORMATION
  Report Type: 
  Country: None (occurrence: None)
  Receive Date: 20061023
  Receipt Date: 20061011
  Transmission Date: 20070319
  Serious: Yes (Other)
  Sender: FDA-Public Use
  Company Number: 2006126371

PATIENT
  Sex: Female
  Weight: 70.3075 kg

DRUGS (10)
  1. LIPITOR [Suspect]
     Indication: BLOOD CHOLESTEROL INCREASED
     Dosage: 10 MG (10 MG, 1 IN 1 D)
  2. SYNTHROID [Concomitant]
  3. PREMARIN [Concomitant]
  4. CALCIUM WITH VITAMIN D (CALCIUM PHOSPHATE, CALCIUM SODIUM LACTATE, ERG [Concomitant]
  5. CO-Q-10 (UBIDECARENONE) [Concomitant]
  6. ALL OTHER THERAPEUTC PRODUCTS (ALL OTHER THERAPEUTIC PRODUCTS) [Concomitant]
  7. ASPIRIN [Concomitant]
  8. FISH OIL (FISH OIL) [Concomitant]
  9. METFORMIN HCL [Concomitant]
  10. GLUCOPHAGE [Concomitant]

REACTIONS (3)
  - BLOOD CHOLESTEROL INCREASED [None]
  - C-REACTIVE PROTEIN INCREASED [None]
  - GAIT DISTURBANCE [None]
